FAERS Safety Report 8372063-2 (Version None)
Quarter: 2012Q2

REPORT INFORMATION
  Report Type: 
  Country: None (occurrence: None)
  Receive Date: 20120520
  Receipt Date: 20120423
  Transmission Date: 20120825
  Serious: Yes (Other)
  Sender: FDA-Public Use
  Company Number: PHHY2011KR111562

PATIENT
  Sex: Male
  Weight: 61 kg

DRUGS (1)
  1. EXJADE [Suspect]
     Indication: ACUTE MYELOID LEUKAEMIA
     Dosage: 10 MG/KG
     Route: 048
     Dates: start: 20100312

REACTIONS (4)
  - DRUG DEPENDENCE [None]
  - SERUM FERRITIN ABNORMAL [None]
  - BLOOD PRESSURE INCREASED [None]
  - HEART RATE INCREASED [None]
